FAERS Safety Report 23902127 (Version 1)
Quarter: 2024Q2

REPORT INFORMATION
  Report Type: Spontaneous
  Country: US (occurrence: None)
  Receive Date: 20240526
  Receipt Date: 20240526
  Transmission Date: 20240715
  Serious: No
  Sender: FDA-Public Use
  Company Number: US-ROCHE-3399083

PATIENT
  Age: 4 Year
  Sex: Female
  Weight: 14.528 kg

DRUGS (4)
  1. ACTEMRA [Suspect]
     Active Substance: TOCILIZUMAB
     Indication: Juvenile idiopathic arthritis
     Dosage: INFORMATION 0.9 ML PER DOSE INTO THE BELLY OR THIGH
     Route: 058
     Dates: start: 202302
  2. ACTEMRA [Suspect]
     Active Substance: TOCILIZUMAB
  3. ACTEMRA [Suspect]
     Active Substance: TOCILIZUMAB
     Indication: Juvenile idiopathic arthritis
     Route: 042
     Dates: start: 202206, end: 202302
  4. METHOTREXATE [Concomitant]
     Active Substance: METHOTREXATE
     Indication: Arthritis
     Dosage: 15 MG PER DOSE (SOLUTION IS 50 MG PER 2 ML)
     Route: 048

REACTIONS (8)
  - Scratch [Not Recovered/Not Resolved]
  - Haemorrhage [Unknown]
  - Pain [Recovered/Resolved]
  - Product dose omission issue [Unknown]
  - Exposure via skin contact [Unknown]
  - Underdose [Unknown]
  - Needle issue [Unknown]
  - Thermal burn [Unknown]

NARRATIVE: CASE EVENT DATE: 20230801
